FAERS Safety Report 9665871 (Version 1)
Quarter: 2013Q4

REPORT INFORMATION
  Report Type: Spontaneous
  Country: US (occurrence: None)
  Receive Date: 20131031
  Receipt Date: 20131031
  Transmission Date: 20140711
  Serious: Yes (Disabling)
  Sender: FDA-Public Use
  Company Number: None

PATIENT
  Age: 59 Year
  Sex: Female
  Weight: 79.38 kg

DRUGS (8)
  1. COLCRYS [Suspect]
     Indication: RASH GENERALISED
     Route: 048
     Dates: start: 20120101, end: 20130301
  2. ULTRAM [Concomitant]
  3. METHPCARBAMOL [Concomitant]
  4. IMMURAN [Concomitant]
  5. METOPROLOL [Concomitant]
  6. LOSARTAN [Concomitant]
  7. SONATA [Concomitant]
  8. TYLENOL [Concomitant]

REACTIONS (2)
  - Alopecia [None]
  - Product substitution issue [None]
